FAERS Safety Report 4477451-2 (Version None)
Quarter: 2004Q4

REPORT INFORMATION
  Report Type: 
  Country: None (occurrence: None)
  Receive Date: 20041012
  Receipt Date: 20040923
  Transmission Date: 20050328
  Serious: Yes (Death, Life-Threatening, Hospitalization)
  Sender: FDA-Public Use
  Company Number: 234290

PATIENT
  Age: 48 Year
  Sex: Male
  Weight: 80 kg

DRUGS (13)
  1. NOVOSEVEN (EPTACOGA ALFA (ACTIVATED) POWDER FOR INJECTION [Suspect]
     Indication: POST PROCEDURAL HAEMORRHAGE
     Dosage: 19.2 MG, QD
     Dates: start: 20031110, end: 20031110
  2. NOVOSEVEN (EPTACOGA ALFA (ACTIVATED) POWDER FOR INJECTION [Suspect]
     Indication: POST PROCEDURAL HAEMORRHAGE
     Dosage: 19.2 MG, QD
     Dates: start: 20031112, end: 20031112
  3. SILDENAFIL (SILDENAFIL) [Concomitant]
  4. SUFENTANIL CITRATE [Concomitant]
  5. MIDAZOLAM HCL [Concomitant]
  6. NORADRENALIN ^LECIVA^ (NOREPINEPHRINE) [Concomitant]
  7. DOBUTAMIN ^HEXAL^ (DOBUTAMINE HYDROCHLORIDE) [Concomitant]
  8. IMIPENEM (IMIPENEM) [Concomitant]
  9. METRONIDAZOL ^ALPHARMA^ (METRONIDAZOLE) [Concomitant]
  10. TOBRAMYCIN [Concomitant]
  11. SELENIDE SODIUM (SELENIDE SODIUM) [Concomitant]
  12. HYDROCORTISON (HYDROCORTISONE) [Concomitant]
  13. ACETYLCYSTEINE [Concomitant]

REACTIONS (20)
  - ANURIA [None]
  - ARTERIAL HAEMORRHAGE [None]
  - BLADDER NECROSIS [None]
  - BLOOD LACTIC ACID INCREASED [None]
  - CHOLECYSTITIS [None]
  - CYANOSIS [None]
  - EMBOLISM [None]
  - GALLBLADDER NECROSIS [None]
  - GASTROINTESTINAL HAEMORRHAGE [None]
  - GASTROINTESTINAL NECROSIS [None]
  - GENERAL PHYSICAL HEALTH DETERIORATION [None]
  - HAEMODYNAMIC INSTABILITY [None]
  - HAEMORRHAGE [None]
  - HAEMORRHAGIC DIATHESIS [None]
  - HEPATIC NECROSIS [None]
  - NECROSIS [None]
  - OXYGEN SATURATION ABNORMAL [None]
  - SEPSIS [None]
  - TACHYARRHYTHMIA [None]
  - THROMBOSIS [None]
